FAERS Safety Report 13388478 (Version 1)
Quarter: 2017Q1

REPORT INFORMATION
  Report Type: Spontaneous
  Country: US (occurrence: US)
  Receive Date: 20170330
  Receipt Date: 20170330
  Transmission Date: 20170429
  Serious: No
  Sender: FDA-Public Use
  Company Number: US-ELI_LILLY_AND_COMPANY-US201410012048

PATIENT
  Age: 54 Year
  Sex: Female

DRUGS (3)
  1. CYMBALTA [Suspect]
     Active Substance: DULOXETINE HYDROCHLORIDE
     Indication: DEPRESSION
     Dosage: 20 MG, BID
     Route: 048
  2. PROZAC [Suspect]
     Active Substance: FLUOXETINE HYDROCHLORIDE
     Indication: PRODUCT USED FOR UNKNOWN INDICATION
     Dosage: UNK, UNKNOWN
     Route: 065
  3. CYMBALTA [Suspect]
     Active Substance: DULOXETINE HYDROCHLORIDE
     Indication: FIBROMYALGIA
     Dosage: 30 MG, QD
     Route: 048

REACTIONS (20)
  - Depression [Unknown]
  - Confusional state [Unknown]
  - Disturbance in attention [Unknown]
  - Stress [Unknown]
  - Irritability [Unknown]
  - Withdrawal syndrome [Unknown]
  - Headache [Unknown]
  - Nightmare [Unknown]
  - Sensory disturbance [Unknown]
  - Sleep disorder [Unknown]
  - Decreased appetite [Unknown]
  - Mood swings [Unknown]
  - Crying [Unknown]
  - Dysphoria [Unknown]
  - Lethargy [Unknown]
  - Memory impairment [Unknown]
  - Agitation [Unknown]
  - Drug ineffective [Unknown]
  - Fatigue [Unknown]
  - Anxiety [Unknown]

NARRATIVE: CASE EVENT DATE: 20160511
